FAERS Safety Report 13291836 (Version 2)
Quarter: 2017Q1

REPORT INFORMATION
  Report Type: Spontaneous
  Country: US (occurrence: US)
  Receive Date: 20170303
  Receipt Date: 20170316
  Transmission Date: 20170428
  Serious: Yes (Hospitalization, Other)
  Sender: FDA-Public Use
  Company Number: US-AMGEN-USASP2017031490

PATIENT
  Age: 84 Year
  Sex: Female

DRUGS (4)
  1. ENBREL [Suspect]
     Active Substance: ETANERCEPT
     Dosage: 50 MG, QWK (TUESDAY)
     Route: 065
  2. ENBREL [Suspect]
     Active Substance: ETANERCEPT
     Indication: RHEUMATOID ARTHRITIS
     Dosage: 50 MG, QWK (FRIDAY)
     Route: 065
     Dates: end: 20170224
  3. METHOTREXATE. [Concomitant]
     Active Substance: METHOTREXATE
     Indication: RHEUMATOID ARTHRITIS
     Dosage: 2.5 MG, 6 PILLS A WEEK
  4. ENBREL [Suspect]
     Active Substance: ETANERCEPT
     Dosage: 50 MG, QWK (TUESDAY)
     Route: 065
     Dates: start: 20170307

REACTIONS (9)
  - Rotator cuff syndrome [Not Recovered/Not Resolved]
  - Visual acuity reduced [Not Recovered/Not Resolved]
  - Musculoskeletal stiffness [Unknown]
  - Trigger finger [Recovering/Resolving]
  - Muscular weakness [Not Recovered/Not Resolved]
  - Drug dose omission [Unknown]
  - Parkinson^s disease [Not Recovered/Not Resolved]
  - Cardiac failure congestive [Unknown]
  - Sleep disorder [Not Recovered/Not Resolved]

NARRATIVE: CASE EVENT DATE: 2016
